FAERS Safety Report 14327669 (Version 4)
Quarter: 2019Q3

REPORT INFORMATION
  Report Type: Spontaneous
  Country: DE (occurrence: DE)
  Receive Date: 20171227
  Receipt Date: 20190701
  Transmission Date: 20191004
  Serious: Yes (Other)
  Sender: FDA-Public Use
  Company Number: PHHY2017DE189788

PATIENT
  Age: 32 Year
  Sex: Female

DRUGS (3)
  1. ZONEGRAN [Suspect]
     Active Substance: ZONISAMIDE
     Indication: EPILEPSY
     Dosage: 200 MG, QD
     Route: 048
  2. CARBAMAZEPINE. [Suspect]
     Active Substance: CARBAMAZEPINE
     Indication: EPILEPSY
     Dosage: 1000 MG, QD (500 MG, BID)
     Route: 048
  3. LEVETIRACETAM. [Suspect]
     Active Substance: LEVETIRACETAM
     Indication: EPILEPSY
     Dosage: 1000 MG, QD (500 MG, BID) (FIRST TRIMESTER)
     Route: 048

REACTIONS (4)
  - Maternal exposure during pregnancy [Unknown]
  - Gestational diabetes [Unknown]
  - Pre-eclampsia [Unknown]
  - Premature delivery [Unknown]

NARRATIVE: CASE EVENT DATE: 20160508
